FAERS Safety Report 12285789 (Version 3)
Quarter: 2016Q3

REPORT INFORMATION
  Report Type: Spontaneous
  Country: CA (occurrence: CA)
  Receive Date: 20160420
  Receipt Date: 20160906
  Transmission Date: 20161109
  Serious: Yes (Death, Hospitalization, Other)
  Sender: FDA-Public Use
  Company Number: CA-009507513-1604CAN010960

PATIENT
  Age: 63 Year
  Sex: Male

DRUGS (1)
  1. POSANOL [Suspect]
     Active Substance: POSACONAZOLE
     Indication: NON-HODGKIN^S LYMPHOMA
     Dosage: 300 MG, DAILY
     Route: 048
     Dates: start: 20160317, end: 20160722

REACTIONS (4)
  - Human herpesvirus 6 infection [Unknown]
  - Death [Fatal]
  - Amnesia [Unknown]
  - Adverse event [Unknown]

NARRATIVE: CASE EVENT DATE: 2016
